FAERS Safety Report 9925842 (Version 1)
Quarter: 2014Q1

REPORT INFORMATION
  Report Type: Spontaneous
  Country: US (occurrence: US)
  Receive Date: 20140226
  Receipt Date: 20140226
  Transmission Date: 20141002
  Serious: No
  Sender: FDA-Public Use
  Company Number: US-GILEAD-2014-0095105

PATIENT
  Age: 55 Year
  Sex: Male

DRUGS (2)
  1. SOVALDI [Suspect]
     Indication: CHRONIC HEPATITIS C
     Dosage: 400 MG, UNK
     Route: 065
     Dates: start: 20140215
  2. RIBAPAK [Concomitant]

REACTIONS (5)
  - Head discomfort [Unknown]
  - Headache [Unknown]
  - Influenza like illness [Unknown]
  - Feeling hot [Unknown]
  - Disturbance in attention [Unknown]
